FAERS Safety Report 7373708-6 (Version None)
Quarter: 2011Q1

REPORT INFORMATION
  Report Type: 
  Country: None (occurrence: None)
  Receive Date: 20110325
  Receipt Date: 20100706
  Transmission Date: 20110831
  Serious: Yes (Other)
  Sender: FDA-Public Use
  Company Number: US-MYLANLABS-2010S1008970

PATIENT
  Age: 37 Year
  Sex: Female
  Weight: 109.55 kg

DRUGS (2)
  1. SERTRALINE HYDROCHLORIDE [Suspect]
     Indication: DEPRESSION
     Route: 048
     Dates: start: 20090101, end: 20100201
  2. SERTRALINE HYDROCHLORIDE [Suspect]
     Route: 048
     Dates: start: 20100520

REACTIONS (3)
  - VAGINAL HAEMORRHAGE [None]
  - AMENORRHOEA [None]
  - MENSTRUATION IRREGULAR [None]
